FAERS Safety Report 9105571 (Version 1)
Quarter: 2013Q1

REPORT INFORMATION
  Report Type: Spontaneous
  Country: US (occurrence: US)
  Receive Date: 20130220
  Receipt Date: 20130220
  Transmission Date: 20140127
  Serious: Yes (Other)
  Sender: FDA-Public Use
  Company Number: US-ASTRAZENECA-2013SE10279

PATIENT
  Age: 76 Year
  Sex: Male

DRUGS (1)
  1. VIMOVO [Suspect]
     Indication: ARTHRITIS
     Dosage: 500/20 MG, TWICE DAILY
     Route: 048

REACTIONS (1)
  - Rib fracture [Unknown]
